FAERS Safety Report 7662661-3 (Version None)
Quarter: 2011Q3

REPORT INFORMATION
  Report Type: 
  Country: None (occurrence: None)
  Receive Date: 20110805
  Receipt Date: 20100823
  Transmission Date: 20111222
  Serious: No
  Sender: FDA-Public Use
  Company Number: US-ABBOTT-10P-163-0665980-00

PATIENT
  Sex: Female
  Weight: 83.99 kg

DRUGS (4)
  1. UNKNOWN MED  FOR STOMACH [Concomitant]
     Indication: PRODUCT USED FOR UNKNOWN INDICATION
  2. NIASPAN [Suspect]
     Indication: HIGH DENSITY LIPOPROTEIN DECREASED
     Dates: end: 20100823
  3. PROTONIX [Concomitant]
     Indication: PRODUCT USED FOR UNKNOWN INDICATION
  4. ACULITE [Concomitant]
     Indication: LUNG DISORDER

REACTIONS (4)
  - COUGH [None]
  - PALPITATIONS [None]
  - HEADACHE [None]
  - FLUSHING [None]
